FAERS Safety Report 7391228-X (Version None)
Quarter: 2011Q1

REPORT INFORMATION
  Report Type: 
  Country: None (occurrence: None)
  Receive Date: 20110324
  Receipt Date: 20110310
  Transmission Date: 20110831
  Serious: Yes (Hospitalization)
  Sender: FDA-Public Use
  Company Number: 1000017653

PATIENT
  Sex: Female

DRUGS (1)
  1. ESCITALOPRAM OXALATE [Suspect]
     Dosage: 20 MG; 30 MG; 20 MG

REACTIONS (6)
  - SUICIDE ATTEMPT [None]
  - HEART RATE INCREASED [None]
  - CONDITION AGGRAVATED [None]
  - URTICARIA [None]
  - OVERDOSE [None]
  - SUICIDAL IDEATION [None]
